FAERS Safety Report 4980966-1 (Version None)
Quarter: 2006Q2

REPORT INFORMATION
  Report Type: 
  Country: None (occurrence: None)
  Receive Date: 20060424
  Receipt Date: 20060418
  Transmission Date: 20061013
  Serious: Yes (Hospitalization, Other)
  Sender: FDA-Public Use
  Company Number: JP-JNJFOC-20060401400

PATIENT
  Sex: Male
  Weight: 74.6 kg

DRUGS (11)
  1. MICONAZOLE [Suspect]
     Route: 048
     Dates: start: 20060215, end: 20060305
  2. WARFARIN SODIUM [Interacting]
     Indication: ATRIAL FIBRILLATION
     Route: 048
     Dates: start: 19960808, end: 20060308
  3. ISOSORBIDE DINITRATE [Concomitant]
     Indication: HYPERTENSION
     Route: 048
     Dates: start: 19970207
  4. ALLOPURINOL [Concomitant]
     Indication: HYPERURICAEMIA
     Route: 048
     Dates: start: 20011009
  5. FUROSEMIDE [Concomitant]
     Route: 048
     Dates: start: 20010525
  6. PROPRANOLOL HYDROCHLORIDE [Concomitant]
     Indication: HYPERTENSION
     Route: 048
     Dates: start: 19971021
  7. METILDIGOXIN [Concomitant]
     Route: 048
     Dates: start: 19971021
  8. MAGNESIUM OXIDE [Concomitant]
     Indication: CONSTIPATION
     Route: 048
     Dates: start: 20000623
  9. NORTRIPTYLINE HCL [Concomitant]
     Route: 048
  10. RILMAZAFONE HYDROCHLORIDE [Concomitant]
     Route: 048
  11. LORAZEPAM [Concomitant]
     Route: 048

REACTIONS (8)
  - DRUG INTERACTION [None]
  - HAEMATOMA [None]
  - HAEMORRHAGE SUBCUTANEOUS [None]
  - ILLUSION [None]
  - INTERNATIONAL NORMALISED RATIO INCREASED [None]
  - MONOPLEGIA [None]
  - MOUTH HAEMORRHAGE [None]
  - RETROPERITONEAL HAEMORRHAGE [None]
